FAERS Safety Report 5324888-5 (Version None)
Quarter: 2007Q2

REPORT INFORMATION
  Report Type: 
  Country: None (occurrence: None)
  Receive Date: 20070515
  Receipt Date: 20070511
  Transmission Date: 20071010
  Serious: Yes (Hospitalization)
  Sender: FDA-Public Use
  Company Number: FRWYE640714MAY07

PATIENT
  Age: 9 Month
  Sex: Female
  Weight: 7.5 kg

DRUGS (4)
  1. ADVIL [Suspect]
     Indication: PYREXIA
     Dosage: UNKNOWN
     Route: 048
     Dates: start: 20070217, end: 20070219
  2. DOLIPRANE [Concomitant]
     Indication: PYREXIA
     Route: 048
     Dates: start: 20070217
  3. TIORFAN [Concomitant]
     Indication: DIARRHOEA INFECTIOUS
     Dosage: UNKNOWN
     Route: 048
  4. MOTILIUM [Suspect]
     Indication: DIARRHOEA INFECTIOUS
     Dosage: UNKNOWN
     Route: 048
     Dates: end: 20070219

REACTIONS (7)
  - BLOOD CHLORIDE INCREASED [None]
  - BLOOD GLUCOSE INCREASED [None]
  - BLOOD POTASSIUM INCREASED [None]
  - BLOOD SODIUM INCREASED [None]
  - DEHYDRATION [None]
  - PROTEIN TOTAL INCREASED [None]
  - RENAL FAILURE [None]
